FAERS Safety Report 8160616-6 (Version None)
Quarter: 2012Q1

REPORT INFORMATION
  Report Type: 
  Country: None (occurrence: None)
  Receive Date: 20120223
  Receipt Date: 20120213
  Transmission Date: 20120608
  Serious: Yes (Hospitalization)
  Sender: FDA-Public Use
  Company Number: DE-ROCHE-1032618

PATIENT
  Sex: Female
  Weight: 77 kg

DRUGS (14)
  1. IBUPROFEN [Concomitant]
  2. DOXORUBICIN HCL [Concomitant]
     Indication: NON-HODGKIN'S LYMPHOMA
  3. PREDNISOLONE [Concomitant]
     Indication: NON-HODGKIN'S LYMPHOMA
  4. MAGNESIUM [Concomitant]
  5. ZOPICLON [Concomitant]
  6. GINGIUM [Concomitant]
  7. ASPIRIN [Concomitant]
  8. TRAMADOL HCL [Concomitant]
  9. PANTOPRAZOLE [Concomitant]
  10. CYCLOPHOSPHAMIDE [Concomitant]
     Indication: NON-HODGKIN'S LYMPHOMA
  11. SIMVASTATIN [Concomitant]
  12. LYRICA [Concomitant]
  13. VINCRISTINE [Concomitant]
     Indication: NON-HODGKIN'S LYMPHOMA
  14. RITUXAN [Suspect]
     Indication: NON-HODGKIN'S LYMPHOMA
     Route: 042
     Dates: end: 20111112

REACTIONS (4)
  - GASTROENTERITIS NOROVIRUS [None]
  - OESOPHAGEAL CANDIDIASIS [None]
  - HERPES ZOSTER [None]
  - ENTEROCOLITIS HAEMORRHAGIC [None]
